FAERS Safety Report 7097062-2 (Version None)
Quarter: 2010Q4

REPORT INFORMATION
  Report Type: 
  Country: None (occurrence: None)
  Receive Date: 20101111
  Receipt Date: 20101103
  Transmission Date: 20110411
  Serious: Yes (Disabling)
  Sender: FDA-Public Use
  Company Number: CA-BAYER-201028380NA

PATIENT
  Age: 31 Year
  Sex: Female
  Weight: 70 kg

DRUGS (4)
  1. CIPRO [Suspect]
     Indication: URINARY TRACT INFECTION
     Dosage: TOTAL DAILY DOSE: 1000 MG  UNIT DOSE: 1000 MG
     Route: 048
     Dates: start: 20091205, end: 20091207
  2. HERBAL SUPPLEMENT [Concomitant]
  3. NATUROPATHIC TREATMENT [Concomitant]
  4. VITAMIN D3 [Concomitant]

REACTIONS (27)
  - ANXIETY [None]
  - ARTHRALGIA [None]
  - ASTHENIA [None]
  - CRYING [None]
  - DIZZINESS [None]
  - DRY EYE [None]
  - EAR PAIN [None]
  - EYE DISORDER [None]
  - EYE PAIN [None]
  - FATIGUE [None]
  - FEAR [None]
  - FEELING ABNORMAL [None]
  - FOOD INTOLERANCE [None]
  - HEADACHE [None]
  - HYPOACUSIS [None]
  - INSOMNIA [None]
  - LIMB DISCOMFORT [None]
  - MEMORY IMPAIRMENT [None]
  - MORBID THOUGHTS [None]
  - NAUSEA [None]
  - NERVOUS SYSTEM DISORDER [None]
  - PAIN IN EXTREMITY [None]
  - PHOTOPHOBIA [None]
  - SPEECH DISORDER [None]
  - TINNITUS [None]
  - VISUAL IMPAIRMENT [None]
  - WEIGHT DECREASED [None]
